FAERS Safety Report 24286345 (Version 1)
Quarter: 2024Q3

REPORT INFORMATION
  Report Type: Spontaneous
  Country: US (occurrence: US)
  Receive Date: 20240905
  Receipt Date: 20240905
  Transmission Date: 20241016
  Serious: No
  Sender: ULTRAGENYX PHARMACEUTICAL
  Company Number: US-ULTRAGENYX PHARMACEUTICAL INC.-US-UGX-23-00936

PATIENT
  Sex: Female
  Weight: 24.86 kg

DRUGS (1)
  1. DOJOLVI [Suspect]
     Active Substance: TRIHEPTANOIN
     Indication: Mitochondrial encephalomyopathy
     Dosage: 5 MILLILITER, SEVEN TIMES DAILY
     Route: 048
     Dates: start: 20211028

REACTIONS (2)
  - Abdominal discomfort [Unknown]
  - Off label use [Unknown]
